FAERS Safety Report 6875807-1 (Version None)
Quarter: 2010Q3

REPORT INFORMATION
  Report Type: 
  Country: None (occurrence: None)
  Receive Date: 20100727
  Receipt Date: 20100713
  Transmission Date: 20110219
  Serious: Yes (Hospitalization)
  Sender: FDA-Public Use
  Company Number: JP-TEVA-236088ISR

PATIENT
  Sex: Male
  Weight: 59.2 kg

DRUGS (6)
  1. CISPLATIN [Suspect]
     Indication: GASTRIC CANCER
     Route: 042
     Dates: start: 20100413
  2. CAPECITABINE [Suspect]
     Indication: GASTRIC CANCER
     Route: 048
     Dates: start: 20100413
  3. ANTIXIB [Suspect]
     Indication: GASTRIC CANCER
     Route: 048
     Dates: start: 20100410
  4. BISACODYL [Suspect]
  5. LANSOPRAZOLE [Concomitant]
  6. LEVOTHYROXINE SODIUM [Concomitant]
     Dates: start: 20100419

REACTIONS (1)
  - GASTROINTESTINAL PERFORATION [None]
